FAERS Safety Report 5735521-2 (Version None)
Quarter: 2008Q2

REPORT INFORMATION
  Report Type: 
  Country: None (occurrence: None)
  Receive Date: 20080512
  Receipt Date: 20080430
  Transmission Date: 20081010
  Serious: Yes (Life-Threatening, Hospitalization)
  Sender: FDA-Public Use
  Company Number: GB-PFIZER INC-2005054149

PATIENT
  Age: 47 Year
  Sex: Male

DRUGS (11)
  1. ZYVOX [Interacting]
     Indication: STAPHYLOCOCCAL INFECTION
     Route: 042
     Dates: start: 20041017, end: 20041020
  2. ATENOLOL [Suspect]
     Route: 048
  3. OMEPRAZOLE [Suspect]
     Route: 048
  4. AMISULPRIDE [Suspect]
     Route: 048
  5. DOXAZOSIN MESYLATE [Suspect]
     Route: 048
  6. FENTANYL [Suspect]
     Route: 042
  7. HALOPERIDOL [Interacting]
  8. PANTOPRAZOLE SODIUM [Suspect]
     Route: 042
  9. PROCYCLIDINE HYDROCHLORIDE 2MG TAB [Suspect]
     Route: 048
  10. RIFAMPICIN [Suspect]
     Route: 042
  11. ZOPICLONE [Suspect]

REACTIONS (2)
  - DRUG INTERACTION [None]
  - HYPERTENSION [None]
